FAERS Safety Report 17787037 (Version 2)
Quarter: 2020Q2

REPORT INFORMATION
  Report Type: Spontaneous
  Country: RU (occurrence: RU)
  Receive Date: 20200514
  Receipt Date: 20200610
  Transmission Date: 20200714
  Serious: Yes (Other)
  Sender: FDA-Public Use
  Company Number: RU-JAZZ-2020-RU-006371

PATIENT
  Age: 9 Year
  Sex: Male

DRUGS (1)
  1. DEFITELIO [Suspect]
     Active Substance: DEFIBROTIDE SODIUM
     Indication: THROMBOTIC MICROANGIOPATHY
     Dosage: 25 MILLIGRAM/KILOGRAM/DAY
     Route: 065

REACTIONS (4)
  - Renal haemorrhage [Recovered/Resolved]
  - Cystitis haemorrhagic [Recovered/Resolved]
  - Epistaxis [Unknown]
  - Off label use [Unknown]
